FAERS Safety Report 20934358 (Version 1)
Quarter: 2022Q2

REPORT INFORMATION
  Report Type: Spontaneous
  Country: US (occurrence: US)
  Receive Date: 20220608
  Receipt Date: 20220608
  Transmission Date: 20220721
  Serious: Yes (Other)
  Sender: FDA-Public Use
  Company Number: US-BAYER-2022A077969

PATIENT
  Age: 41 Year
  Sex: Female

DRUGS (2)
  1. RIVAROXABAN [Suspect]
     Active Substance: RIVAROXABAN
     Indication: Angiopathy
     Dosage: 2.5 MG, QD
     Route: 065
  2. RIVAROXABAN [Suspect]
     Active Substance: RIVAROXABAN
     Indication: Hypercoagulation
     Dosage: 5 MG
     Route: 065

REACTIONS (3)
  - Anaemia [Unknown]
  - Haemorrhoids [Unknown]
  - Off label use [Unknown]
